FAERS Safety Report 19254997 (Version 1)
Quarter: 2021Q2

REPORT INFORMATION
  Report Type: Spontaneous
  Country: NO (occurrence: NO)
  Receive Date: 20210513
  Receipt Date: 20210513
  Transmission Date: 20210717
  Serious: Yes (Hospitalization, Disabling)
  Sender: FDA-Public Use
  Company Number: NO-PFIZER INC-2021496951

PATIENT
  Age: 77 Year
  Sex: Female

DRUGS (5)
  1. HALDOL [Concomitant]
     Active Substance: HALOPERIDOL
  2. XALKORI [Suspect]
     Active Substance: CRIZOTINIB
     Indication: LUNG ADENOCARCINOMA
     Dosage: 500 MG, 1X/DAY
     Route: 048
     Dates: start: 20210112, end: 20210223
  3. ELIQUIS [Concomitant]
     Active Substance: APIXABAN
  4. DOLCONTIN [MORPHINE SULFATE] [Concomitant]
  5. MOVENTIG [Concomitant]
     Active Substance: NALOXEGOL OXALATE

REACTIONS (3)
  - Hepatic enzyme increased [Recovered/Resolved]
  - Pneumonitis [Recovering/Resolving]
  - General physical health deterioration [Recovering/Resolving]

NARRATIVE: CASE EVENT DATE: 20210224
